FAERS Safety Report 7003076-0 (Version None)
Quarter: 2010Q3

REPORT INFORMATION
  Report Type: 
  Country: None (occurrence: None)
  Receive Date: 20100920
  Receipt Date: 20091221
  Transmission Date: 20110219
  Serious: No
  Sender: FDA-Public Use
  Company Number: US-ASTRAZENECA-2009SE33019

PATIENT
  Age: 62 Year
  Sex: Female
  Weight: 86.2 kg

DRUGS (4)
  1. SEROQUEL XR [Suspect]
     Indication: SLEEP DISORDER
     Route: 048
     Dates: start: 20091219
  2. SEROQUEL XR [Suspect]
     Dosage: 1 TABLET AND ONE HOUR LATER SPLIT A 50 MG AND TOTAL OF 75 MG.
     Route: 048
  3. CYMBALTA [Concomitant]
  4. VAGIFEM CREAM [Concomitant]

REACTIONS (2)
  - INCORRECT DOSE ADMINISTERED [None]
  - SOMNOLENCE [None]
